FAERS Safety Report 7981150-X (Version None)
Quarter: 2011Q4

REPORT INFORMATION
  Report Type: 
  Country: None (occurrence: None)
  Receive Date: 20111212
  Receipt Date: 20111205
  Transmission Date: 20120403
  Serious: Yes (Death, Hospitalization)
  Sender: FDA-Public Use
  Company Number: 2011SP056617

PATIENT
  Age: 59 Year
  Sex: Female

DRUGS (1)
  1. POSACONAZOLE [Suspect]
     Indication: ASPERGILLOMA
     Dosage: 400 MG
     Dates: start: 20111014

REACTIONS (1)
  - DEATH [None]
